FAERS Safety Report 19976190 (Version 2)
Quarter: 2021Q4

REPORT INFORMATION
  Report Type: Report from Study
  Country: US (occurrence: US)
  Receive Date: 20211020
  Receipt Date: 20211105
  Transmission Date: 20220304
  Serious: Yes (Other)
  Sender: FDA-Public Use
  Company Number: US-NOVARTISPH-NVSC2021US236058

PATIENT
  Age: 68 Year
  Sex: Female

DRUGS (1)
  1. XIIDRA [Suspect]
     Active Substance: LIFITEGRAST
     Indication: Dry eye
     Dosage: UNK, SOLUTION, TOPICAL
     Route: 047
     Dates: start: 20210920

REACTIONS (5)
  - Blindness [Unknown]
  - Systemic lupus erythematosus [Unknown]
  - Ocular discomfort [Unknown]
  - Eye irritation [Unknown]
  - Headache [Unknown]

NARRATIVE: CASE EVENT DATE: 20210920
